FAERS Safety Report 23738570 (Version 1)
Quarter: 2024Q2

REPORT INFORMATION
  Report Type: Spontaneous
  Country: US (occurrence: US)
  Receive Date: 20240412
  Receipt Date: 20240412
  Transmission Date: 20240716
  Serious: No
  Sender: FDA-Public Use
  Company Number: US-SANDOZ-SDZ2024US037499

PATIENT
  Sex: Female
  Weight: 59.87 kg

DRUGS (1)
  1. CEFTRIAXONE [Suspect]
     Active Substance: CEFTRIAXONE\CEFTRIAXONE SODIUM
     Indication: Urinary tract infection
     Dosage: 1 G (IN HER LEFT VENTROGLUTEAL)
     Route: 030
     Dates: start: 20240401

REACTIONS (1)
  - Expired product administered [Unknown]
